FAERS Safety Report 23903277 (Version 1)
Quarter: 2024Q2

REPORT INFORMATION
  Report Type: Spontaneous
  Country: US (occurrence: US)
  Receive Date: 20240527
  Receipt Date: 20240527
  Transmission Date: 20240715
  Serious: Yes (Other)
  Sender: FDA-Public Use
  Company Number: US-JNJFOC-20240559781

PATIENT
  Age: 62 Year
  Sex: Female

DRUGS (2)
  1. RISPERDAL [Suspect]
     Active Substance: RISPERIDONE
     Indication: Manic symptom
     Route: 065
  2. HALOPERIDOL [Suspect]
     Active Substance: HALOPERIDOL
     Indication: Manic symptom
     Route: 065

REACTIONS (4)
  - Delirium [Unknown]
  - Catatonia [Unknown]
  - Manic symptom [Unknown]
  - Off label use [Unknown]
